FAERS Safety Report 4773121-1 (Version None)
Quarter: 2005Q3

REPORT INFORMATION
  Report Type: 
  Country: None (occurrence: None)
  Receive Date: 20050919
  Receipt Date: 20050909
  Transmission Date: 20060218
  Serious: Yes (Hospitalization)
  Sender: FDA-Public Use
  Company Number: 2005-US-00036

PATIENT
  Age: 57 Year
  Sex: Female

DRUGS (1)
  1. CLOZAPINE TABLETS, 12.5MG, 25MG, 50 MG 100MG (TABLETS) [Suspect]
     Indication: BIPOLAR DISORDER
     Dosage: 25 MG QD, ORAL
     Route: 048
     Dates: start: 20020101, end: 20050901

REACTIONS (4)
  - AUTONOMIC NERVOUS SYSTEM IMBALANCE [None]
  - BLOOD PRESSURE ORTHOSTATIC [None]
  - DEHYDRATION [None]
  - HYPOTENSION [None]
